FAERS Safety Report 4996257-9 (Version None)
Quarter: 2006Q2

REPORT INFORMATION
  Report Type: 
  Country: None (occurrence: None)
  Receive Date: 20060509
  Receipt Date: 20051017
  Transmission Date: 20061013
  Serious: Yes (Other)
  Sender: FDA-Public Use
  Company Number: PHNR2005AU01512

PATIENT
  Age: 78 Year
  Sex: Male

DRUGS (7)
  1. PAMIDRONATE DISODIUM [Suspect]
     Indication: PROSTATE CANCER METASTATIC
  2. RANI 2 [Concomitant]
  3. CLOPIDOGREL BISULFATE [Concomitant]
  4. PEXSIG [Concomitant]
  5. CARDIZEM [Concomitant]
  6. DIGOXIN [Concomitant]
  7. TOFRANIL [Concomitant]

REACTIONS (6)
  - BONE DEBRIDEMENT [None]
  - BONE DISORDER [None]
  - JAW DISORDER [None]
  - OSTEONECROSIS [None]
  - PAIN IN JAW [None]
  - TOOTH EXTRACTION [None]
